FAERS Safety Report 9382734 (Version 2)
Quarter: 2013Q3

REPORT INFORMATION
  Report Type: Report from Study
  Country: US (occurrence: US)
  Receive Date: 20130703
  Receipt Date: 20130715
  Transmission Date: 20140515
  Serious: Yes (Other)
  Sender: FDA-Public Use
  Company Number: US-009507513-1307USA000223

PATIENT
  Sex: Male

DRUGS (3)
  1. REBETOL [Suspect]
     Indication: CHRONIC HEPATITIS C
     Dosage: 800 MG, DAILY IN DIVIDED DOSES
     Route: 048
     Dates: start: 20130618
  2. VICTRELIS [Suspect]
     Indication: CHRONIC HEPATITIS C
     Dosage: UNK
     Route: 065
     Dates: start: 20130618
  3. PEGASYS [Suspect]
     Indication: CHRONIC HEPATITIS C
     Dosage: 180 MICROGRAM, QW
     Route: 058
     Dates: start: 20130618

REACTIONS (7)
  - Stress [Unknown]
  - Pyrexia [Unknown]
  - Depression [Unknown]
  - Decreased appetite [Unknown]
  - Crying [Unknown]
  - White blood cell count decreased [Unknown]
  - Red blood cell count decreased [Unknown]
